FAERS Safety Report 5514408-4 (Version None)
Quarter: 2007Q4

REPORT INFORMATION
  Report Type: 
  Country: None (occurrence: None)
  Receive Date: 20071113
  Receipt Date: 20070606
  Transmission Date: 20080405
  Serious: No
  Sender: FDA-Public Use
  Company Number: A0650830A

PATIENT
  Age: 68 Year
  Sex: Female
  Weight: 59.5 kg

DRUGS (7)
  1. COREG [Suspect]
     Dosage: 6.25MG TWICE PER DAY
     Route: 048
     Dates: start: 20061001
  2. ENALAPRIL MALEATE [Concomitant]
     Dosage: 2.5MG PER DAY
     Route: 048
  3. DIGITEK [Concomitant]
  4. FUROSEMIDE [Concomitant]
     Dosage: 20MG PER DAY
  5. SPIRONOLACTONE [Concomitant]
  6. POTASSIUM CHLORIDE [Concomitant]
  7. VITAMINS [Concomitant]

REACTIONS (5)
  - BLOOD PRESSURE DECREASED [None]
  - COUGH [None]
  - DIZZINESS [None]
  - VISION BLURRED [None]
  - VISUAL DISTURBANCE [None]
